FAERS Safety Report 5368922-5 (Version None)
Quarter: 2007Q2

REPORT INFORMATION
  Report Type: 
  Country: None (occurrence: None)
  Receive Date: 20070625
  Receipt Date: 20061218
  Transmission Date: 20071010
  Serious: Yes (Hospitalization)
  Sender: FDA-Public Use
  Company Number: US-ASTRAZENECA-2006UW28080

PATIENT
  Age: 75 Year
  Sex: Male
  Weight: 108.6 kg

DRUGS (8)
  1. ROSUVASTATIN [Suspect]
     Indication: DYSLIPIDAEMIA
     Route: 048
     Dates: start: 20060823, end: 20060918
  2. ABT-335 [Suspect]
     Indication: DYSLIPIDAEMIA
     Route: 048
     Dates: start: 20060823, end: 20060918
  3. LORAZEPAM [Suspect]
     Indication: INSOMNIA
     Dates: start: 20030617
  4. DILTIAZEM HYDROCHLORIDE [Concomitant]
     Indication: HYPERTENSION
     Dates: start: 20040618
  5. LISINOPRIL [Concomitant]
     Indication: HYPERTENSION
     Dates: start: 20030404
  6. FINASTERIDE [Concomitant]
     Indication: BENIGN PROSTATIC HYPERPLASIA
     Dates: start: 20000905
  7. RYTHMOL [Concomitant]
     Indication: CORONARY ARTERY DISEASE
     Dates: start: 19990101
  8. DYAZIDE [Concomitant]
     Indication: HYPERTENSION
     Dosage: 5.25/37.5 MG
     Dates: start: 20030617

REACTIONS (2)
  - DIZZINESS [None]
  - VERTIGO [None]
